FAERS Safety Report 21563782 (Version 2)
Quarter: 2022Q4

REPORT INFORMATION
  Report Type: Report from Study
  Country: BR (occurrence: BR)
  Receive Date: 20221108
  Receipt Date: 20221109
  Transmission Date: 20230113
  Serious: Yes (Other)
  Sender: FDA-Public Use
  Company Number: BR-CELLTRION INC.-2022BR018258

PATIENT

DRUGS (7)
  1. TRUXIMA [Suspect]
     Active Substance: RITUXIMAB-ABBS
     Indication: Hashimoto^s encephalopathy
     Dosage: 4 AMPOULES EVERY 6 MONTHS; INFUSION IS DIVIDED IN TWO TIMES; THEREFORE, EVERY 6 MONTHS THE FIRST INF
     Dates: start: 20221028
  2. RITUXIMAB [Suspect]
     Active Substance: RITUXIMAB
     Dosage: UNK
     Dates: start: 202011, end: 202204
  3. LAMOTRIGINE [Concomitant]
     Active Substance: LAMOTRIGINE
     Indication: Seizure
     Dosage: 4 PILLS PER DAY
     Route: 048
     Dates: start: 2020
  4. DULOXETINE HYDROCHLORIDE [Concomitant]
     Active Substance: DULOXETINE HYDROCHLORIDE
     Indication: Fibromyalgia
     Dosage: 1 PILL PER DAY
     Route: 048
     Dates: start: 202209
  5. PREGABALIN [Concomitant]
     Active Substance: PREGABALIN
     Indication: Fibromyalgia
     Dosage: 1 PILL PER DAY
     Route: 048
     Dates: start: 2017
  6. CYCLOBENZAPRINE [Concomitant]
     Active Substance: CYCLOBENZAPRINE
     Indication: Fibromyalgia
     Dosage: 1 PILL PER DAY
     Route: 048
     Dates: start: 202209
  7. SERTRALINE HYDROCHLORIDE [Concomitant]
     Active Substance: SERTRALINE HYDROCHLORIDE
     Indication: Anxiety
     Dosage: 1 PILL PER DAY
     Route: 048
     Dates: start: 202011

REACTIONS (2)
  - Hashimoto^s encephalopathy [Unknown]
  - Off label use [Unknown]
